FAERS Safety Report 25606668 (Version 1)
Quarter: 2025Q3

REPORT INFORMATION
  Report Type: Spontaneous
  Country: US (occurrence: None)
  Receive Date: 20250724
  Receipt Date: 20250724
  Transmission Date: 20251020
  Serious: Yes (Other)
  Sender: FDA-CTU
  Company Number: None

PATIENT
  Age: 56 Year
  Sex: Female
  Weight: 63 kg

DRUGS (1)
  1. ERYTHROMYCIN [Suspect]
     Active Substance: ERYTHROMYCIN
     Indication: Eye operation
     Dosage: 1 DROP(S) 3 TIMES A DAY OPHTHALMIC?
     Route: 047
     Dates: start: 20250718, end: 20250722

REACTIONS (4)
  - Application site pain [None]
  - Application site swelling [None]
  - Eyelid margin crusting [None]
  - Post procedural drainage [None]

NARRATIVE: CASE EVENT DATE: 20250723
